FAERS Safety Report 16333147 (Version 1)
Quarter: 2019Q2

REPORT INFORMATION
  Report Type: Report from Study
  Country: US (occurrence: US)
  Receive Date: 20190520
  Receipt Date: 20190520
  Transmission Date: 20190711
  Serious: Yes (Death)
  Sender: FDA-Public Use
  Company Number: US-PFIZER INC-2019208415

PATIENT
  Age: 22 Year

DRUGS (7)
  1. CARBOPLATIN. [Suspect]
     Active Substance: CARBOPLATIN
     Indication: HODGKIN^S DISEASE
     Dosage: UNK, CYCLIC (3X, SALVAGE CHEMOTHERAPY)HIGH-DOSE
  2. VINBLASTINE [Suspect]
     Active Substance: VINBLASTINE
     Indication: HODGKIN^S DISEASE
     Dosage: UNK, CYCLIC  (8X, INDUCTION CHEMOTHERAPY)HIGH-DOSE
  3. DOXORUBICIN HCL [Suspect]
     Active Substance: DOXORUBICIN HYDROCHLORIDE
     Indication: HODGKIN^S DISEASE
     Dosage: UNK, CYCLIC (8X, INDUCTION CHEMOTHERAPY, CYCLES)HIGH-DOSE
  4. BLEOMYCIN SULFATE [Suspect]
     Active Substance: BLEOMYCIN SULFATE
     Indication: HODGKIN^S DISEASE
     Dosage: UNK, CYCLIC(8X, INDUCTION CHEMOTHERAPY)HIGH-DOSE
  5. ETOPOSIDE. [Suspect]
     Active Substance: ETOPOSIDE
     Indication: HODGKIN^S DISEASE
     Dosage: UNK, CYCLIC (3X, SALVAGE CHEMOTHERAPY)HIGH-DOSE
  6. DACARBAZINE. [Suspect]
     Active Substance: DACARBAZINE
     Indication: HODGKIN^S DISEASE
     Dosage: UNK, CYCLIC (8X, INDUCTION CHEMOTHERAPY)HIGH-DOSE
  7. IFOSFAMIDE. [Suspect]
     Active Substance: IFOSFAMIDE
     Indication: HODGKIN^S DISEASE
     Dosage: UNK, CYCLIC (3X, SALVAGE CHEMOTHERAPY)HIGH-DOSE

REACTIONS (2)
  - Second primary malignancy [Fatal]
  - T-cell lymphoma [Fatal]
